FAERS Safety Report 8658640 (Version 2)
Quarter: 2012Q4

REPORT INFORMATION
  Report Type: 
  Country: US (occurrence: US)
  Receive Date: 20120710
  Receipt Date: 20120927
  Transmission Date: 20130627
  Serious: Yes (Death)
  Sender: FDA-Public Use
  Company Number: US-FRI-1000036813

PATIENT
  Age: 28 Year
  Sex: Male

DRUGS (4)
  1. VIIBRYD [Suspect]
     Indication: DEPRESSION
     Dosage: 10 mg
     Route: 048
     Dates: start: 20120608, end: 201206
  2. NALTREXONE [Suspect]
     Indication: ALCOHOLISM
     Dosage: 50 mg
     Dates: start: 20120608, end: 201206
  3. ALCOHOL [Suspect]
     Dates: end: 20120619
  4. DIAZEPAM [Concomitant]

REACTIONS (3)
  - Completed suicide [Fatal]
  - Binge drinking [None]
  - Gun shot wound [None]
